FAERS Safety Report 20816035 (Version 1)
Quarter: 2022Q2

REPORT INFORMATION
  Report Type: Spontaneous
  Country: US (occurrence: US)
  Receive Date: 20220511
  Receipt Date: 20220511
  Transmission Date: 20220721
  Serious: No
  Sender: FDA-Public Use
  Company Number: US-ELI_LILLY_AND_COMPANY-US202205001388

PATIENT
  Sex: Female

DRUGS (2)
  1. TADALAFIL [Suspect]
     Active Substance: TADALAFIL
     Indication: Product used for unknown indication
     Dosage: UNK UNK, UNKNOWN
     Route: 065
     Dates: start: 2020
  2. REMODULIN [Suspect]
     Active Substance: TREPROSTINIL
     Indication: Pulmonary arterial hypertension
     Dosage: 200.9 UNK, OTHER (200.9NG/KG/MIN, 0.068ML/HR)
     Route: 058
     Dates: start: 20111209

REACTIONS (4)
  - Seasonal allergy [Unknown]
  - Eye pruritus [Unknown]
  - Eye irritation [Unknown]
  - Swelling of eyelid [Unknown]
